FAERS Safety Report 24985434 (Version 1)
Quarter: 2025Q1

REPORT INFORMATION
  Report Type: Spontaneous
  Country: BR (occurrence: BR)
  Receive Date: 20250219
  Receipt Date: 20250219
  Transmission Date: 20250409
  Serious: Yes (Other)
  Sender: BAYER HEALTHCARE PHARMACEUTICALS INC.
  Company Number: BR-BAYER-2025A020207

PATIENT
  Age: 24 Year
  Sex: Female

DRUGS (1)
  1. GADOBUTROL [Suspect]
     Active Substance: GADOBUTROL
     Indication: Magnetic resonance imaging
     Dates: start: 20250131, end: 20250131

REACTIONS (3)
  - Erythema [None]
  - Dysphonia [None]
  - Throat clearing [None]

NARRATIVE: CASE EVENT DATE: 20250131
